FAERS Safety Report 17554353 (Version 1)
Quarter: 2020Q1

REPORT INFORMATION
  Report Type: Report from Study
  Country: US (occurrence: US)
  Receive Date: 20200318
  Receipt Date: 20200318
  Transmission Date: 20200409
  Serious: Yes (Other)
  Sender: FDA-Public Use
  Company Number: US-TEVA-2020-US-1204128

PATIENT

DRUGS (1)
  1. GABAPENTIN. [Suspect]
     Active Substance: GABAPENTIN
     Dosage: MAXIMUM DOSE ADMINISTERED WAS 35MG/KG/DAY
     Route: 065

REACTIONS (2)
  - Sedation complication [Recovered/Resolved]
  - Off label use [Unknown]
